FAERS Safety Report 7459460-4 (Version None)
Quarter: 2011Q2

REPORT INFORMATION
  Report Type: 
  Country: None (occurrence: None)
  Receive Date: 20110505
  Receipt Date: 20110420
  Transmission Date: 20111010
  Serious: Yes (Hospitalization, Other)
  Sender: FDA-Public Use
  Company Number: JP-JNJFOC-20110401623

PATIENT
  Sex: Female
  Weight: 41 kg

DRUGS (15)
  1. LODOPIN [Concomitant]
     Route: 048
  2. CONTOMIN [Concomitant]
     Route: 048
  3. AMARYL [Concomitant]
     Route: 048
  4. AKINETON [Concomitant]
     Route: 048
  5. TEGRETOL [Concomitant]
     Route: 048
  6. NOVOLIN N [Concomitant]
     Route: 065
  7. SINLESTAL [Concomitant]
     Route: 048
  8. INSULIN [Concomitant]
     Route: 065
  9. LODOPIN [Concomitant]
     Route: 048
  10. NELBON [Concomitant]
     Route: 048
  11. INVEGA [Suspect]
     Indication: SCHIZOPHRENIA
     Route: 048
  12. INVEGA [Suspect]
     Route: 048
  13. RISPERDAL [Concomitant]
     Route: 048
  14. PYRETHIA [Concomitant]
     Route: 048
  15. AMOBAN [Concomitant]
     Route: 048

REACTIONS (3)
  - AFFECT LABILITY [None]
  - HYPOGLYCAEMIA [None]
  - LOGORRHOEA [None]
